FAERS Safety Report 23245289 (Version 2)
Quarter: 2023Q4

REPORT INFORMATION
  Report Type: Other
  Country: US (occurrence: None)
  Receive Date: 20231130
  Receipt Date: 20231205
  Transmission Date: 20240109
  Serious: Yes (Other)
  Sender: FDA-Public Use
  Company Number: US-ROCHE-3464432

PATIENT
  Age: 69 Year
  Sex: Female
  Weight: 52.21 kg

DRUGS (6)
  1. MYCOPHENOLATE MOFETIL [Suspect]
     Active Substance: MYCOPHENOLATE MOFETIL
     Indication: Product used for unknown indication
     Route: 065
  2. TREPROSTINIL [Suspect]
     Active Substance: TREPROSTINIL
     Indication: Pulmonary arterial hypertension
     Dosage: 48 UG (16 UG + 32 (CONTINUED)
     Route: 055
  3. TYVASO DPI [Suspect]
     Active Substance: TREPROSTINIL
     Indication: Pulmonary arterial hypertension
     Route: 065
     Dates: start: 202212
  4. TYVASO DPI [Suspect]
     Active Substance: TREPROSTINIL
     Route: 065
  5. OPSUMIT [Suspect]
     Active Substance: MACITENTAN
     Indication: Product used for unknown indication
     Route: 065
  6. PREDNISONE [Concomitant]
     Active Substance: PREDNISONE

REACTIONS (7)
  - Scleroderma [Unknown]
  - Oedema peripheral [Unknown]
  - Headache [Unknown]
  - Fungal infection [Unknown]
  - Gastrointestinal disorder [Unknown]
  - Fluid retention [Unknown]
  - Gastrointestinal disorder [Unknown]
